FAERS Safety Report 7235950-4 (Version None)
Quarter: 2011Q1

REPORT INFORMATION
  Report Type: 
  Country: None (occurrence: None)
  Receive Date: 20110120
  Receipt Date: 20110112
  Transmission Date: 20110831
  Serious: Yes (Hospitalization)
  Sender: FDA-Public Use
  Company Number: A0905227A

PATIENT
  Sex: Female

DRUGS (1)
  1. AVANDAMET [Suspect]
     Dosage: 2TAB PER DAY
     Route: 065

REACTIONS (4)
  - MALAISE [None]
  - FATIGUE [None]
  - CEREBROVASCULAR ACCIDENT [None]
  - ABASIA [None]
